FAERS Safety Report 9286803 (Version 4)
Quarter: 2014Q1

REPORT INFORMATION
  Report Type: Report from Study
  Country: US (occurrence: US)
  Receive Date: 20130513
  Receipt Date: 20140207
  Transmission Date: 20141002
  Serious: Yes (Death, Other)
  Sender: FDA-Public Use
  Company Number: US-ALEXION-A201300989

PATIENT
  Age: 37 Year
  Sex: Male
  Weight: 58.8 kg

DRUGS (8)
  1. SOLIRIS [Suspect]
     Indication: HAEMOLYTIC URAEMIC SYNDROME
     Dosage: QWX4
     Route: 042
     Dates: start: 20130331
  2. SOLIRIS [Suspect]
     Dosage: MAINTENANCE DOSE
     Route: 042
     Dates: start: 20130428
  3. VANCOMYCIN [Concomitant]
     Indication: STAPHYLOCOCCAL BACTERAEMIA
  4. ANCEF [Concomitant]
     Indication: STAPHYLOCOCCAL BACTERAEMIA
  5. TACROLIMUS [Concomitant]
     Indication: GRAFT VERSUS HOST DISEASE
     Dosage: UNK
     Dates: end: 201304
  6. SIROLIMUS [Concomitant]
     Indication: GRAFT VERSUS HOST DISEASE
     Dosage: UNK
     Dates: end: 201304
  7. CELLCEPT [Concomitant]
  8. ERYTHROMYCIN [Concomitant]
     Indication: DRY EYE

REACTIONS (8)
  - Pulmonary haemorrhage [Fatal]
  - Disease recurrence [Fatal]
  - Multi-organ failure [Fatal]
  - Pain [Unknown]
  - Diarrhoea [Unknown]
  - Abdominal pain [Unknown]
  - Nausea [Unknown]
  - Vomiting [Unknown]
